FAERS Safety Report 17430144 (Version 11)
Quarter: 2022Q2

REPORT INFORMATION
  Report Type: Spontaneous
  Country: US (occurrence: US)
  Receive Date: 20200218
  Receipt Date: 20220504
  Transmission Date: 20220721
  Serious: No
  Sender: FDA-Public Use
  Company Number: US-PFIZER INC-2020024531

PATIENT
  Age: 59 Year
  Sex: Male

DRUGS (3)
  1. SUTENT [Suspect]
     Active Substance: SUNITINIB MALATE
     Indication: Sarcoma
     Dosage: 37.5 MG, DAILY (TAKE ONE CAPSULE BY MOUTH DAILY, 28 DAY SUPPLY)
     Route: 048
  2. SUTENT [Suspect]
     Active Substance: SUNITINIB MALATE
     Indication: Extraskeletal myxoid chondrosarcoma
  3. SUTENT [Suspect]
     Active Substance: SUNITINIB MALATE
     Indication: Soft tissue sarcoma

REACTIONS (6)
  - Neoplasm progression [Unknown]
  - Off label use [Unknown]
  - Product dose omission issue [Unknown]
  - Weight decreased [Unknown]
  - Abdominal discomfort [Unknown]
  - Diarrhoea [Unknown]
